FAERS Safety Report 4705437-9 (Version None)
Quarter: 2005Q3

REPORT INFORMATION
  Report Type: 
  Country: None (occurrence: None)
  Receive Date: 20050701
  Receipt Date: 20050621
  Transmission Date: 20060218
  Serious: Yes (Life-Threatening)
  Sender: FDA-Public Use
  Company Number: 407529

PATIENT
  Age: 61 Year
  Sex: Female

DRUGS (1)
  1. DILATREND [Suspect]
     Indication: HYPERTENSION
     Dosage: 25MG PER DAY
     Route: 048
     Dates: start: 20041205, end: 20050131

REACTIONS (9)
  - ASTHMA [None]
  - BRADYCARDIA [None]
  - DEPRESSION [None]
  - DYSPNOEA [None]
  - FLUID RETENTION [None]
  - HEADACHE [None]
  - INSOMNIA [None]
  - ORTHOSTATIC HYPOTENSION [None]
  - PERIPHERAL CIRCULATORY FAILURE [None]
